FAERS Safety Report 10386067 (Version 1)
Quarter: 2014Q1

REPORT INFORMATION
  Report Type: Spontaneous
  Country: US (occurrence: None)
  Receive Date: 20140306
  Receipt Date: 20140306
  Transmission Date: 20141002
  Serious: Yes (Hospitalization)
  Sender: FDA-Public Use
  Company Number: 163-21880-13063532

PATIENT
  Age: 66 Year
  Sex: Female

DRUGS (7)
  1. REVLIMIB (LENALIDOMIDE) (25 MILLIGRAM, CAPSULES) [Suspect]
     Indication: PLASMA CELL MYELOMA
     Dosage: 25MG, 14 IN 21 D, PO
     Route: 048
     Dates: start: 20130613
  2. ACYCLOVIR (ACICLOVIR) (ACICLOVIR) [Concomitant]
  3. DAPSONE [Concomitant]
  4. ALLOPURINOL [Concomitant]
  5. NYSTATIN [Concomitant]
  6. PROTONIX [Concomitant]
  7. ZOFRAN (ONDANSETRON HYDROCHLORIDE) [Concomitant]

REACTIONS (1)
  - Hypotension [None]
